FAERS Safety Report 7909290-1 (Version None)
Quarter: 2011Q4

REPORT INFORMATION
  Report Type: 
  Country: None (occurrence: None)
  Receive Date: 20111111
  Receipt Date: 20111101
  Transmission Date: 20120403
  Serious: Yes (Hospitalization, Other)
  Sender: FDA-Public Use
  Company Number: US-ELI_LILLY_AND_COMPANY-US201111000999

PATIENT
  Sex: Female

DRUGS (4)
  1. LYRICA [Concomitant]
     Indication: NEUROPATHY PERIPHERAL
     Dosage: UNK
     Dates: start: 20110501
  2. HUMALOG [Suspect]
     Dosage: UNK, TID
  3. HUMALOG [Suspect]
     Indication: TYPE 2 DIABETES MELLITUS
     Dosage: UNK, TID
  4. MULTI-VITAMIN [Concomitant]
     Dosage: UNK

REACTIONS (3)
  - MALAISE [None]
  - CORONARY ARTERY BYPASS [None]
  - PANCREATITIS [None]
